FAERS Safety Report 9895950 (Version 1)
Quarter: 2014Q1

REPORT INFORMATION
  Report Type: Spontaneous
  Country: US (occurrence: US)
  Receive Date: 20140213
  Receipt Date: 20140213
  Transmission Date: 20141002
  Serious: No
  Sender: FDA-Public Use
  Company Number: US-BRISTOL-MYERS SQUIBB COMPANY-17403189

PATIENT
  Age: 60 Year
  Sex: Female

DRUGS (1)
  1. ORENCIA [Suspect]
     Dosage: LSST INFUSION:7-JAN-2013?NO OF INFUSIONS: 4
     Route: 042

REACTIONS (2)
  - Dizziness [Unknown]
  - Drug ineffective [Unknown]
